FAERS Safety Report 21655003 (Version 1)
Quarter: 2022Q4

REPORT INFORMATION
  Report Type: Report from Study
  Country: US (occurrence: US)
  Receive Date: 20221129
  Receipt Date: 20221129
  Transmission Date: 20230112
  Serious: No
  Sender: FDA-Public Use
  Company Number: US-ABBVIE-4183567

PATIENT
  Sex: Female

DRUGS (4)
  1. RINVOQ [Suspect]
     Active Substance: UPADACITINIB
     Indication: Product used for unknown indication
     Route: 048
  2. COVID-19 vaccine [Concomitant]
     Indication: COVID-19 immunisation
     Route: 030
  3. COVID-19 vaccine [Concomitant]
     Indication: COVID-19 immunisation
     Route: 030
  4. COVID-19 vaccine [Concomitant]
     Indication: COVID-19 immunisation
     Route: 030

REACTIONS (1)
  - Rectal fissure [Recovering/Resolving]
